FAERS Safety Report 7939053-2 (Version None)
Quarter: 2011Q4

REPORT INFORMATION
  Report Type: 
  Country: None (occurrence: None)
  Receive Date: 20111124
  Receipt Date: 20111121
  Transmission Date: 20120403
  Serious: Yes (Other)
  Sender: FDA-Public Use
  Company Number: US-PFIZER INC-2011282868

PATIENT
  Sex: Female
  Weight: 63.492 kg

DRUGS (2)
  1. DILANTIN [Suspect]
     Dosage: 100 MG, 3X/DAY
     Route: 048
     Dates: start: 20111001, end: 20111001
  2. DILANTIN [Suspect]
     Indication: CONVULSION
     Dosage: 100 MG, 3X/DAY
     Route: 048
     Dates: start: 19530101, end: 20110101

REACTIONS (3)
  - PALPITATIONS [None]
  - HYPERTENSION [None]
  - MALAISE [None]
